FAERS Safety Report 5154267-5 (Version None)
Quarter: 2006Q4

REPORT INFORMATION
  Report Type: 
  Country: None (occurrence: None)
  Receive Date: 20061120
  Receipt Date: 20061108
  Transmission Date: 20070319
  Serious: Yes (Other)
  Sender: FDA-Public Use
  Company Number: US-ELI_LILLY_AND_COMPANY-US200611001740

PATIENT
  Age: 73 Year
  Sex: Female

DRUGS (4)
  1. EVISTA [Suspect]
     Indication: OSTEOPOROSIS
     Dosage: UNK, UNKNOWN
     Route: 048
     Dates: end: 20060601
  2. CALCIUM CARBONATE [Concomitant]
     Dosage: 500 MG, 2/D
     Route: 065
  3. CALCIUM CARBONATE [Concomitant]
     Dosage: 500 MG, 3/D
     Route: 065
     Dates: start: 20061108
  4. ACTONEL                                 /USA/ [Concomitant]
     Dosage: UNK, UNKNOWN
     Route: 065

REACTIONS (2)
  - FALL [None]
  - LOWER LIMB FRACTURE [None]
